FAERS Safety Report 6424045-5 (Version None)
Quarter: 2009Q4

REPORT INFORMATION
  Report Type: 
  Country: None (occurrence: None)
  Receive Date: 20091102
  Receipt Date: 20091021
  Transmission Date: 20100525
  Serious: Yes (Other)
  Sender: FDA-Public Use
  Company Number: FR-ELI_LILLY_AND_COMPANY-FR200910005419

PATIENT
  Age: 60 Year
  Sex: Male

DRUGS (1)
  1. CYMBALTA [Suspect]
     Dosage: 60 MG, DAILY (1/D)
     Route: 065

REACTIONS (1)
  - INTRAOCULAR PRESSURE INCREASED [None]
